FAERS Safety Report 15860660 (Version 3)
Quarter: 2019Q3

REPORT INFORMATION
  Report Type: Spontaneous
  Country: JP (occurrence: JP)
  Receive Date: 20190124
  Receipt Date: 20190917
  Transmission Date: 20191004
  Serious: Yes (Hospitalization, Other)
  Sender: FDA-Public Use
  Company Number: JP-SUN PHARMACEUTICAL INDUSTRIES LTD-2019R1-196909

PATIENT
  Age: 64 Year
  Sex: Male

DRUGS (1)
  1. COTRIMOXAZOLE [Suspect]
     Active Substance: SULFAMETHOXAZOLE\TRIMETHOPRIM
     Indication: URINARY TRACT INFECTION
     Dosage: UNK
     Route: 065
     Dates: start: 201405

REACTIONS (6)
  - Drug reaction with eosinophilia and systemic symptoms [Unknown]
  - Hypothyroidism [Recovered/Resolved]
  - Autoimmune thyroiditis [Unknown]
  - Eosinophil count increased [Unknown]
  - Liver function test abnormal [Unknown]
  - Fulminant type 1 diabetes mellitus [Unknown]
